FAERS Safety Report 9298000 (Version 2)
Quarter: 2013Q3

REPORT INFORMATION
  Report Type: Spontaneous
  Country: US (occurrence: US)
  Receive Date: 20130520
  Receipt Date: 20130708
  Transmission Date: 20140515
  Serious: Yes (Hospitalization, Other)
  Sender: FDA-Public Use
  Company Number: US-PFIZER INC-2013150796

PATIENT
  Age: 76 Year
  Sex: Female
  Weight: 61.68 kg

DRUGS (4)
  1. DETROL LA [Suspect]
     Indication: URINARY INCONTINENCE
     Dosage: 04 MG, 1X/DAY (DAILY)
     Route: 048
     Dates: end: 2013
  2. DETROL LA [Suspect]
     Indication: HYPERTONIC BLADDER
  3. AVALIDE [Concomitant]
     Indication: HYPERTENSION
     Dosage: 150/12.5 MG, 1X/DAY
  4. MYRBETIQ [Concomitant]
     Indication: URINARY INCONTINENCE
     Dosage: UNK

REACTIONS (5)
  - Fall [Unknown]
  - Fractured coccyx [Unknown]
  - Fractured sacrum [Unknown]
  - Gait disturbance [Unknown]
  - Dry mouth [Recovering/Resolving]
